FAERS Safety Report 23578706 (Version 1)
Quarter: 2024Q1

REPORT INFORMATION
  Report Type: Spontaneous
  Country: GB (occurrence: GB)
  Receive Date: 20240229
  Receipt Date: 20240229
  Transmission Date: 20240410
  Serious: Yes (Other)
  Sender: FDA-Public Use
  Company Number: GB-MHRA-ADR 28534761

PATIENT
  Sex: Male

DRUGS (1)
  1. TERBINAFINE [Suspect]
     Active Substance: TERBINAFINE
     Indication: Antifungal treatment
     Dosage: 200 MILLIGRAM
     Route: 065

REACTIONS (8)
  - Lower respiratory tract infection [Unknown]
  - Rash macular [Unknown]
  - Seasonal allergy [Unknown]
  - Ear pain [Unknown]
  - Sensory disturbance [Unknown]
  - Fatigue [Unknown]
  - Pharyngitis [Unknown]
  - Nasopharyngitis [Recovering/Resolving]
